FAERS Safety Report 9291430 (Version 2)
Quarter: 2013Q2

REPORT INFORMATION
  Report Type: Other
  Country: GB (occurrence: GB)
  Receive Date: 20130515
  Receipt Date: 20130619
  Transmission Date: 20140414
  Serious: Yes (Other)
  Sender: FDA-Public Use
  Company Number: GB-ACTAVIS-2013-08453

PATIENT
  Sex: Female

DRUGS (10)
  1. ZOPICLONE (UNKNOWN) [Suspect]
     Indication: INSOMNIA
     Dosage: UNKNOWN
     Route: 064
  2. DIAZEPAM (UNKNOWN) [Suspect]
     Indication: TREMOR
     Dosage: 5MG QD
     Route: 064
  3. SALBUTAMOL (UNKNOWN) [Suspect]
     Indication: ASTHMA
     Dosage: UNKNOWN
     Route: 064
  4. NICOTINE (UNKNOWN) [Suspect]
     Indication: PRODUCT USED FOR UNKNOWN INDICATION
     Dosage: UNKNOWN EXACT DOSING DETAILS, REPORTED MOTHER SMOKED CIGARETTES DURING PREGNANCY
     Route: 064
  5. SUBUTEX [Suspect]
     Indication: DRUG DEPENDENCE
     Dosage: MOTHER TOOK 8MG INITIALLY
     Route: 064
     Dates: start: 20020228, end: 2002
  6. SUBUTEX [Suspect]
     Dosage: UNKNOWN
     Route: 064
     Dates: start: 2002, end: 2002
  7. SUBUTEX [Suspect]
     Dosage: 800UG
     Route: 064
     Dates: start: 2002, end: 2002
  8. SUBUTEX [Suspect]
     Dosage: MOTHER WAS ON 1.2 MG AT DELIVERY
     Route: 064
     Dates: start: 2002, end: 20020706
  9. BECOTIDE [Suspect]
     Indication: PRODUCT USED FOR UNKNOWN INDICATION
     Dosage: UNKNOWN
     Route: 064
  10. METHADONE [Suspect]
     Indication: PRODUCT USED FOR UNKNOWN INDICATION
     Dosage: UNKNOWN
     Route: 064
     Dates: end: 2001

REACTIONS (2)
  - Foetal exposure during pregnancy [Recovered/Resolved]
  - Drug withdrawal syndrome neonatal [Recovered/Resolved]
